FAERS Safety Report 25577902 (Version 1)
Quarter: 2025Q3

REPORT INFORMATION
  Report Type: Spontaneous
  Country: US (occurrence: US)
  Receive Date: 20250718
  Receipt Date: 20250718
  Transmission Date: 20251020
  Serious: No
  Sender: NOVO NORDISK
  Company Number: US-NOVOPROD-1419204

PATIENT
  Age: 74 Year
  Sex: Female

DRUGS (3)
  1. RYBELSUS [Suspect]
     Active Substance: SEMAGLUTIDE
     Indication: Type 2 diabetes mellitus
     Dosage: 3 MG, QD
     Dates: start: 20211104, end: 202203
  2. RYBELSUS [Suspect]
     Active Substance: SEMAGLUTIDE
  3. RYBELSUS [Suspect]
     Active Substance: SEMAGLUTIDE
     Indication: Glycosylated haemoglobin
     Dosage: 3 MG, QD
     Dates: start: 202304

REACTIONS (3)
  - Weight decreased [Not Recovered/Not Resolved]
  - Constipation [Recovered/Resolved]
  - Off label use [Not Recovered/Not Resolved]

NARRATIVE: CASE EVENT DATE: 20211101
